FAERS Safety Report 9685714 (Version 2)
Quarter: 2014Q2

REPORT INFORMATION
  Report Type: Spontaneous
  Country: FR (occurrence: FR)
  Receive Date: 20131113
  Receipt Date: 20140408
  Transmission Date: 20141212
  Serious: Yes (Hospitalization, Other)
  Sender: FDA-Public Use
  Company Number: FR-ELI_LILLY_AND_COMPANY-FR201310010303

PATIENT
  Age: 85 Year
  Sex: Male

DRUGS (16)
  1. PROZAC [Suspect]
     Indication: PRODUCT USED FOR UNKNOWN INDICATION
     Dosage: 1 DF, EACH MORNING
     Route: 048
     Dates: end: 20131004
  2. PLAVIX [Suspect]
     Indication: PRODUCT USED FOR UNKNOWN INDICATION
     Dosage: 1 DF, QD
     Route: 048
     Dates: end: 20131001
  3. PLAVIX [Suspect]
     Dosage: 75 DF, QD
     Route: 048
     Dates: start: 20131004
  4. FLUDEX                             /00340101/ [Concomitant]
     Dosage: 1.5 DF, EACH MORNING
  5. ZOCOR [Concomitant]
     Dosage: 20 DF, EACH EVENING
  6. LEXOMIL [Concomitant]
     Dosage: 1 DF, EACH EVENING
  7. ATACAND [Concomitant]
     Dosage: 8 DF, EACH MORNING
     Dates: end: 20131004
  8. DIFFU K [Concomitant]
     Dosage: 1 DF, EACH MORNING
  9. LASILIX [Concomitant]
     Indication: CARDIAC FAILURE
     Dosage: 20 MG, EACH MORNING
  10. LASILIX [Concomitant]
     Dosage: 60 MG, QD
     Dates: start: 20131003
  11. LASILIX [Concomitant]
     Dosage: 40 MG, UNK
     Dates: start: 20131004
  12. LASILIX [Concomitant]
     Dosage: 20 MG, UNK
     Dates: start: 20131005
  13. XATRAL LP [Concomitant]
     Dosage: 10 DF, EACH EVENING
  14. PRAVASTATINE [Concomitant]
     Dosage: 20 DF, EACH EVENING
  15. DAFALGAN [Concomitant]
     Indication: PAIN
     Dosage: 500 DF, PRN
  16. TAHOR [Concomitant]
     Dosage: 20 DF, EACH EVENING

REACTIONS (4)
  - Subarachnoid haemorrhage [Recovering/Resolving]
  - Fall [Recovered/Resolved]
  - Cardiac failure [Unknown]
  - Renal failure [Unknown]
